FAERS Safety Report 18505411 (Version 1)
Quarter: 2020Q4

REPORT INFORMATION
  Report Type: Spontaneous
  Country: US (occurrence: US)
  Receive Date: 20201116
  Receipt Date: 20201116
  Transmission Date: 20210114
  Serious: No
  Sender: FDA-Public Use
  Company Number: US-009507513-2011USA000789

PATIENT
  Sex: Female

DRUGS (1)
  1. STERILE DILUENT (WATER) [Suspect]
     Active Substance: WATER
     Indication: INJECTION
     Dosage: UNK, ONCE
     Route: 030
     Dates: start: 20201030

REACTIONS (3)
  - Accidental exposure to product [Unknown]
  - Injection site pain [Recovering/Resolving]
  - Injection site reaction [Recovering/Resolving]

NARRATIVE: CASE EVENT DATE: 20201030
